FAERS Safety Report 22078191 (Version 1)
Quarter: 2023Q1

REPORT INFORMATION
  Report Type: Spontaneous
  Country: CN (occurrence: CN)
  Receive Date: 20230309
  Receipt Date: 20230309
  Transmission Date: 20230418
  Serious: Yes (Other)
  Sender: FDA-Public Use
  Company Number: CN-PFIZER INC-PV202300042393

PATIENT
  Age: 16 Day
  Sex: Female
  Weight: 7.71 kg

DRUGS (1)
  1. AZITHROMYCIN [Suspect]
     Active Substance: AZITHROMYCIN
     Indication: Anti-infective therapy
     Dosage: 0.07 G, 1X/DAY
     Route: 041
     Dates: start: 20230222, end: 20230222

REACTIONS (2)
  - Off label use [Unknown]
  - Diarrhoea neonatal [Recovering/Resolving]

NARRATIVE: CASE EVENT DATE: 20230222
